FAERS Safety Report 8094681-1 (Version None)
Quarter: 2012Q1

REPORT INFORMATION
  Report Type: 
  Country: None (occurrence: None)
  Receive Date: 20120129
  Receipt Date: 20111216
  Transmission Date: 20120608
  Serious: No
  Sender: FDA-Public Use
  Company Number: US-ABBOTT-11P-163-0885185-00

PATIENT
  Sex: Female
  Weight: 47.67 kg

DRUGS (4)
  1. CLONEZEPAMN [Concomitant]
     Indication: INSOMNIA
  2. HUMIRA [Suspect]
     Indication: ANORECTAL INFECTION BACTERIAL
     Route: 058
     Dates: start: 20111123, end: 20111123
  3. HUMIRA [Suspect]
     Indication: COLITIS ULCERATIVE
     Route: 058
     Dates: start: 20111207, end: 20111207
  4. ASACOL [Concomitant]
     Indication: COLITIS ULCERATIVE

REACTIONS (4)
  - OFF LABEL USE [None]
  - FLATULENCE [None]
  - HYPOAESTHESIA [None]
  - CHEST DISCOMFORT [None]
